FAERS Safety Report 13690441 (Version 1)
Quarter: 2017Q2

REPORT INFORMATION
  Report Type: Spontaneous
  Country: NL (occurrence: NL)
  Receive Date: 20170626
  Receipt Date: 20170626
  Transmission Date: 20170830
  Serious: Yes (Other)
  Sender: FDA-Public Use
  Company Number: NL-PFIZER INC-2017274449

PATIENT
  Age: 48 Year
  Sex: Female

DRUGS (2)
  1. RENNIE /01739201/ [Concomitant]
     Route: 048
  2. GABAPENTIN. [Suspect]
     Active Substance: GABAPENTIN
     Indication: NEURALGIA
     Dosage: 800 MG, AS NEEDED 1 TO 2 TABLETS
     Route: 048
     Dates: start: 20161128, end: 20161216

REACTIONS (4)
  - Insomnia [Recovered/Resolved]
  - Haematemesis [Recovered/Resolved]
  - Condition aggravated [Recovered/Resolved]
  - Dyspepsia [Recovered/Resolved]
